FAERS Safety Report 11007681 (Version 2)
Quarter: 2015Q2

REPORT INFORMATION
  Report Type: Spontaneous
  Country: US (occurrence: US)
  Receive Date: 20150409
  Receipt Date: 20150525
  Transmission Date: 20150821
  Serious: No
  Sender: FDA-Public Use
  Company Number: US-JNJFOC-20130611152

PATIENT
  Age: 44 Year
  Sex: Male
  Weight: 87.54 kg

DRUGS (8)
  1. SIMVASTATIN. [Concomitant]
     Active Substance: SIMVASTATIN
     Indication: BLOOD PRESSURE
     Route: 065
     Dates: start: 1993
  2. WARFARIN [Concomitant]
     Active Substance: WARFARIN
     Indication: DEEP VEIN THROMBOSIS
     Route: 065
  3. REMICADE [Suspect]
     Active Substance: INFLIXIMAB
     Indication: CROHN^S DISEASE
     Route: 042
     Dates: start: 201306
  4. PREDNISONE. [Suspect]
     Active Substance: PREDNISONE
     Indication: CROHN^S DISEASE
     Route: 065
     Dates: start: 2013, end: 2013
  5. REMICADE [Suspect]
     Active Substance: INFLIXIMAB
     Indication: CROHN^S DISEASE
     Route: 042
     Dates: start: 20130524, end: 201306
  6. PREDNISONE. [Suspect]
     Active Substance: PREDNISONE
     Indication: CROHN^S DISEASE
     Route: 065
     Dates: start: 201304, end: 2013
  7. NIASPAN [Concomitant]
     Active Substance: NIACIN
     Indication: BLOOD CHOLESTEROL
     Route: 065
     Dates: start: 2011
  8. EFFEXOR [Concomitant]
     Active Substance: VENLAFAXINE HYDROCHLORIDE
     Indication: BLOOD PRESSURE
     Route: 065
     Dates: start: 1998

REACTIONS (4)
  - Constipation [Recovered/Resolved]
  - Underdose [Not Recovered/Not Resolved]
  - Adverse event [Unknown]
  - Drug effect decreased [Not Recovered/Not Resolved]

NARRATIVE: CASE EVENT DATE: 2013
